FAERS Safety Report 11563092 (Version 5)
Quarter: 2017Q2

REPORT INFORMATION
  Report Type: Report from Study
  Country: KR (occurrence: KR)
  Receive Date: 20150928
  Receipt Date: 20170526
  Transmission Date: 20170829
  Serious: Yes (Other)
  Sender: FDA-Public Use
  Company Number: KR-PFIZER INC-2015317062

PATIENT
  Age: 61 Year
  Sex: Male
  Weight: 59 kg

DRUGS (37)
  1. ATENOLOL. [Concomitant]
     Active Substance: ATENOLOL
     Indication: HYPERTENSION
     Dosage: 25 MG, 1X/DAY
     Route: 048
     Dates: start: 20141129, end: 20150417
  2. REBAMIPIDE [Concomitant]
     Active Substance: REBAMIPIDE
     Dosage: 1 DF, 2X/DAY
     Route: 048
     Dates: start: 20150826, end: 20150918
  3. CIMETIDINE [Concomitant]
     Active Substance: CIMETIDINE
     Indication: PROPHYLAXIS
     Dosage: 300 MG, 3X/DAY
     Route: 048
     Dates: start: 20150227, end: 20150303
  4. CIMETIDINE [Concomitant]
     Active Substance: CIMETIDINE
     Dosage: 1 DF, 2X/DAY
     Route: 048
     Dates: start: 20150526, end: 20150529
  5. DEXLANSOPRAZOLE [Concomitant]
     Active Substance: DEXLANSOPRAZOLE
     Indication: PROPHYLAXIS
     Dosage: 30 MG, 1X/DAY
     Route: 048
     Dates: start: 20150826
  6. AXITINIB [Suspect]
     Active Substance: AXITINIB
     Indication: CLEAR CELL RENAL CELL CARCINOMA
     Dosage: 5 MG, CYCLIC
     Dates: start: 20141024, end: 20150918
  7. LEVOFLOXACIN. [Concomitant]
     Active Substance: LEVOFLOXACIN
     Indication: OTITIS MEDIA
     Dosage: 1 DF, 2X/DAY
     Route: 048
     Dates: start: 20150908, end: 20150911
  8. LEVOCETRIZINE [Concomitant]
     Active Substance: LEVOCETIRIZINE
     Indication: OTITIS MEDIA
     Dosage: 0.5 DF, 2X/DAY
     Route: 048
     Dates: start: 20150908, end: 20150911
  9. LEVOTHYROXINE SODIUM. [Concomitant]
     Active Substance: LEVOTHYROXINE SODIUM
     Indication: HYPOTHYROIDISM
     Dosage: 50 UG, 1X/DAY
     Route: 048
     Dates: start: 20150806, end: 20150918
  10. LOXOPROFEN SODIUM HYDRATE [Concomitant]
     Active Substance: LOXOPROFEN SODIUM DIHYDRATE
     Indication: MUSCULOSKELETAL PAIN
     Dosage: 1 DF, 3X/DAY
     Route: 048
     Dates: start: 20150903, end: 20150906
  11. ATORVASTATIN CALCIUM. [Concomitant]
     Active Substance: ATORVASTATIN CALCIUM
     Dosage: 10 MG, 1X/DAY
     Route: 048
     Dates: start: 20150510, end: 20150908
  12. FERROUS SULFATE EXSICCATED [Concomitant]
     Indication: PROPHYLAXIS
     Dosage: 1 DF, 1X/DAY
     Route: 048
     Dates: start: 20150510, end: 20150908
  13. REBAMIPIDE [Concomitant]
     Active Substance: REBAMIPIDE
     Dosage: 1 DF, 2X/DAY
     Route: 048
     Dates: start: 20150526, end: 20150529
  14. ORPHENADRINE HCL [Concomitant]
     Indication: MUSCULOSKELETAL PAIN
     Dosage: 1 DF, 3X/DAY
     Route: 048
     Dates: start: 20150903, end: 20150906
  15. ATORVASTATIN CALCIUM. [Concomitant]
     Active Substance: ATORVASTATIN CALCIUM
     Dosage: 10 MG, 1X/DAY
     Route: 048
     Dates: start: 20150918
  16. TRAMADOL HCL [Concomitant]
     Active Substance: TRAMADOL HYDROCHLORIDE
     Indication: GOUT
     Dosage: 50 MG, AS NEEDED
     Route: 030
     Dates: start: 2011, end: 20150804
  17. STREPTODORNASE W/STREPTOKINASE [Concomitant]
     Dosage: 1 DF, 2X/DAY
     Route: 048
     Dates: start: 20150604, end: 20150606
  18. REBAMIPIDE [Concomitant]
     Active Substance: REBAMIPIDE
     Indication: PROPHYLAXIS
     Dosage: 1 DF, 3X/DAY
     Route: 048
     Dates: start: 20150224, end: 20150302
  19. CIMETIDINE [Concomitant]
     Active Substance: CIMETIDINE
     Dosage: 1 DF, 2X/DAY
     Route: 048
     Dates: start: 20150604, end: 20150606
  20. NAFTOPIDIL [Concomitant]
     Active Substance: NAFTOPIDIL
     Indication: BENIGN PROSTATIC HYPERPLASIA
     Dosage: 75 MG, 1X/DAY
     Route: 048
     Dates: start: 20150728
  21. LOXOPROFEN SODIUM HYDRATE [Concomitant]
     Active Substance: LOXOPROFEN SODIUM DIHYDRATE
     Indication: OTITIS MEDIA
     Dosage: 1 DF, 2X/DAY
     Route: 048
     Dates: start: 20150908, end: 20150911
  22. SODIUM HYALURONATE [Concomitant]
     Active Substance: HYALURONATE SODIUM
     Indication: MUSCULOSKELETAL PAIN
     Dosage: 25 MG, AS NEEDED
     Route: 014
     Dates: start: 20150604, end: 20150916
  23. MORNIFLUMATE [Concomitant]
     Active Substance: MORNIFLUMATE
     Dosage: 350 MG, 2X/DAY
     Route: 048
     Dates: start: 20150604, end: 20150606
  24. MORNIFLUMATE [Concomitant]
     Active Substance: MORNIFLUMATE
     Dosage: 1 DF, 2X/DAY
     Route: 048
     Dates: start: 20150826, end: 20150918
  25. DIAZEPAM. [Concomitant]
     Active Substance: DIAZEPAM
     Indication: MUSCULOSKELETAL PAIN
     Dosage: 0.5 DF, 3X/DAY
     Route: 048
     Dates: start: 20150903, end: 20150906
  26. ATENOLOL. [Concomitant]
     Active Substance: ATENOLOL
     Dosage: 12.5 MG, 1X/DAY
     Route: 048
     Dates: start: 20150430, end: 20150908
  27. STREPTODORNASE W/STREPTOKINASE [Concomitant]
     Indication: MUSCULOSKELETAL PAIN
     Dosage: 1 DF, 2X/DAY
     Route: 048
     Dates: start: 20150526, end: 20150529
  28. CIMETIDINE [Concomitant]
     Active Substance: CIMETIDINE
     Dosage: 1 DF, 2X/DAY
     Route: 048
     Dates: start: 20150826, end: 20150918
  29. ATENOLOL. [Concomitant]
     Active Substance: ATENOLOL
     Dosage: 12.5 MG, 1X/DAY
     Route: 048
     Dates: start: 20150918
  30. PIROXICAM POTASSIUM [Concomitant]
     Indication: GOUT
     Dosage: 22.3 MG, AS NEEDED
     Route: 030
     Dates: start: 2011, end: 20150910
  31. TRAMADOL HCL [Concomitant]
     Active Substance: TRAMADOL HYDROCHLORIDE
     Indication: MUSCULOSKELETAL PAIN
     Dosage: 50 MG, AS NEEDED
     Route: 030
     Dates: start: 20150604, end: 20150916
  32. REBAMIPIDE [Concomitant]
     Active Substance: REBAMIPIDE
     Dosage: 1 DF, 2X/DAY
     Route: 048
     Dates: start: 20150604, end: 20150606
  33. ATORVASTATIN CALCIUM. [Concomitant]
     Active Substance: ATORVASTATIN CALCIUM
     Indication: HYPERLIPIDAEMIA
     Dosage: 10 MG, 1X/DAY
     Route: 048
     Dates: start: 20141115, end: 20141124
  34. ATORVASTATIN CALCIUM. [Concomitant]
     Active Substance: ATORVASTATIN CALCIUM
     Dosage: 10 MG, 1X/DAY
     Route: 048
     Dates: start: 20141129, end: 20150417
  35. MORNIFLUMATE [Concomitant]
     Active Substance: MORNIFLUMATE
     Indication: MUSCULOSKELETAL PAIN
     Dosage: 350 MG, 2X/DAY
     Route: 048
     Dates: start: 20150526, end: 20150529
  36. STREPTODORNASE W/STREPTOKINASE [Concomitant]
     Dosage: 1 DF, 2X/DAY
     Route: 048
     Dates: start: 20150826, end: 20150918
  37. ARTEMISIA ASIATICA/ETHANOL [Concomitant]
     Indication: PROPHYLAXIS
     Dosage: 2 DF, 2X/DAY
     Route: 048
     Dates: start: 20150908, end: 20150911

REACTIONS (1)
  - Pulmonary tuberculosis [Recovered/Resolved]

NARRATIVE: CASE EVENT DATE: 20150910
